FAERS Safety Report 9227496 (Version 3)
Quarter: 2014Q2

REPORT INFORMATION
  Report Type: Spontaneous
  Country: GB (occurrence: GB)
  Receive Date: 20130412
  Receipt Date: 20140508
  Transmission Date: 20141212
  Serious: Yes (Life-Threatening, Hospitalization)
  Sender: FDA-Public Use
  Company Number: PHFR2013GB002147

PATIENT
  Age: 36 Year
  Sex: Male

DRUGS (9)
  1. CLOZARIL [Suspect]
     Indication: SCHIZOPHRENIA
     Dosage: UNK
     Route: 048
     Dates: start: 20031117
  2. CLOZARIL [Suspect]
     Indication: PSYCHOTIC DISORDER
     Dosage: 525 MG, DAILY (200 MG MANE, 325 MG NOCTE)
     Route: 048
  3. EPILIM CHRONO [Concomitant]
     Indication: AFFECTIVE DISORDER
     Dosage: 900 MG, DAILY (300 MG MANE, 600 MG NOCTE)
     Route: 048
  4. LOFEPRAMINE [Concomitant]
     Indication: DEPRESSION
     Dosage: 210 MG, DAILY (70 MG MANE, 140 MG NOCTE)
     Route: 048
  5. AMISULPRIDE [Concomitant]
     Indication: PSYCHOTIC DISORDER
     Dosage: 200 MG, NOCTE
     Route: 048
  6. AMISULPRIDE [Concomitant]
     Dosage: 300 MG, BID
     Route: 048
  7. DIAZEPAM [Concomitant]
     Indication: ANXIETY
     Dosage: 5 MG, QD
  8. HYOSCINE HYDROBROMIDE [Concomitant]
     Indication: SALIVARY HYPERSECRETION
     Dosage: 300 UG, UNK
  9. MOVICOL [Concomitant]
     Indication: CONSTIPATION
     Dosage: UNK UKN, UNK

REACTIONS (3)
  - Intestinal obstruction [Recovered/Resolved]
  - Volvulus [Recovering/Resolving]
  - Schizophrenia [Recovered/Resolved]
